FAERS Safety Report 10089959 (Version 2)
Quarter: 2014Q2

REPORT INFORMATION
  Report Type: Spontaneous
  Country: US (occurrence: US)
  Receive Date: 20140421
  Receipt Date: 20140421
  Transmission Date: 20141212
  Serious: Yes (Other)
  Sender: FDA-Public Use
  Company Number: US-GE HEALTHCARE MEDICAL DIAGNOSTICS-VISP-PR-1402S-0078

PATIENT
  Age: 45 Year
  Sex: Female
  Weight: 73.09 kg

DRUGS (2)
  1. VISIPAQUE [Suspect]
     Indication: MALIGNANT NEOPLASM OF AMPULLA OF VATER
     Route: 042
     Dates: start: 20140227, end: 20140227
  2. VISIPAQUE [Suspect]
     Indication: DIAGNOSTIC PROCEDURE

REACTIONS (1)
  - Dyspnoea [Recovered/Resolved]
